FAERS Safety Report 10020029 (Version 1)
Quarter: 2014Q1

REPORT INFORMATION
  Report Type: Spontaneous
  Country: US (occurrence: US)
  Receive Date: 20140318
  Receipt Date: 20140318
  Transmission Date: 20141002
  Serious: Yes (Other)
  Sender: FDA-Public Use
  Company Number: US-ELI_LILLY_AND_COMPANY-US201403002374

PATIENT
  Sex: Male

DRUGS (2)
  1. HUMALOG LISPRO [Suspect]
     Indication: TYPE 1 DIABETES MELLITUS
     Dosage: UNK, PRN
     Route: 065
  2. LANTUS [Concomitant]
     Route: 065

REACTIONS (7)
  - Hypoglycaemic seizure [Unknown]
  - Hypoglycaemic unconsciousness [Unknown]
  - Muscle contractions involuntary [Unknown]
  - Skin haemorrhage [Unknown]
  - Somnolence [Unknown]
  - Blood glucose increased [Unknown]
  - Drug effect delayed [Unknown]
